FAERS Safety Report 9437348 (Version 3)
Quarter: 2014Q3

REPORT INFORMATION
  Report Type: Spontaneous
  Country: US (occurrence: US)
  Receive Date: 20130802
  Receipt Date: 20140722
  Transmission Date: 20150326
  Serious: Yes (Hospitalization, Other)
  Sender: FDA-Public Use
  Company Number: US-009507513-1307USA017141

PATIENT
  Sex: Female
  Weight: 79.37 kg

DRUGS (1)
  1. NUVARING [Suspect]
     Active Substance: ETHINYL ESTRADIOL\ETONOGESTREL
     Indication: CONTRACEPTION
     Dosage: PLACE VAGINALLY FOR 3 WKS
     Route: 067
     Dates: start: 200607, end: 20061227

REACTIONS (7)
  - Pulmonary embolism [Unknown]
  - Nasopharyngitis [Recovered/Resolved]
  - Coagulopathy [Unknown]
  - Road traffic accident [Unknown]
  - Chest pain [Unknown]
  - Arthropathy [Unknown]
  - Pain in extremity [Unknown]

NARRATIVE: CASE EVENT DATE: 20061220
